FAERS Safety Report 10103161 (Version 1)
Quarter: 2014Q2

REPORT INFORMATION
  Report Type: Spontaneous
  Country: US (occurrence: US)
  Receive Date: 20140424
  Receipt Date: 20140424
  Transmission Date: 20141212
  Serious: No
  Sender: FDA-Public Use
  Company Number: US-BRISTOL-MYERS SQUIBB COMPANY-20141990

PATIENT
  Age: 52 Year
  Sex: Male
  Weight: 126.98 kg

DRUGS (1)
  1. ELIQUIS [Suspect]
     Indication: THROMBOSIS
     Dosage: 20 MG (FOUR 5 MG TABLETS) DAILY FOR ONE WEEK?LAST DOSE 28JAN14

REACTIONS (10)
  - Vomiting [Unknown]
  - Anaemia [Unknown]
  - Diarrhoea [Unknown]
  - Weight decreased [Unknown]
  - Renal pain [Unknown]
  - Chromaturia [Unknown]
  - Skin discolouration [Unknown]
  - Malaise [Unknown]
  - Abdominal pain [Unknown]
  - Drug administration error [Unknown]
